FAERS Safety Report 15296309 (Version 2)
Quarter: 2018Q3

REPORT INFORMATION
  Report Type: Spontaneous
  Country: US (occurrence: US)
  Receive Date: 20180820
  Receipt Date: 20180918
  Transmission Date: 20181010
  Serious: Yes (Hospitalization)
  Sender: FDA-Public Use
  Company Number: US-JNJFOC-20180809353

PATIENT
  Age: 26 Year
  Sex: Female
  Weight: 95.3 kg

DRUGS (10)
  1. INVEGA SUSTENNA [Suspect]
     Active Substance: PALIPERIDONE PALMITATE
     Indication: AFFECTIVE DISORDER
     Route: 030
     Dates: start: 20171007
  2. BENZTROPINE. [Concomitant]
     Active Substance: BENZTROPINE
     Indication: EXTRAPYRAMIDAL DISORDER
     Route: 048
     Dates: start: 20180802
  3. BACLOFEN. [Concomitant]
     Active Substance: BACLOFEN
     Indication: MUSCULOSKELETAL STIFFNESS
     Dosage: AS NECESSARY
     Route: 048
     Dates: start: 20180802
  4. CLONAZEPAM. [Concomitant]
     Active Substance: CLONAZEPAM
     Indication: PANIC ATTACK
     Route: 048
     Dates: start: 20180730
  5. FLUVOXAMINE [Concomitant]
     Active Substance: FLUVOXAMINE
     Indication: OBSESSIVE-COMPULSIVE DISORDER
     Dosage: AS NECESSARY
     Route: 048
     Dates: start: 20180730
  6. BENZTROPINE. [Concomitant]
     Active Substance: BENZTROPINE
     Indication: EXTRAPYRAMIDAL DISORDER
     Route: 048
     Dates: start: 20180802
  7. CLONAZEPAM. [Concomitant]
     Active Substance: CLONAZEPAM
     Indication: ANXIETY
     Dosage: AS NECESSARY
     Route: 048
     Dates: start: 20180730
  8. CLONAZEPAM. [Concomitant]
     Active Substance: CLONAZEPAM
     Indication: ANXIETY
     Route: 048
     Dates: start: 20180730
  9. BACLOFEN. [Concomitant]
     Active Substance: BACLOFEN
     Indication: MUSCLE SPASMS
     Dosage: AS NECESSARY
     Route: 048
     Dates: start: 20180802
  10. CLONAZEPAM. [Concomitant]
     Active Substance: CLONAZEPAM
     Indication: PANIC ATTACK
     Dosage: AS NECESSARY
     Route: 048
     Dates: start: 20180730

REACTIONS (5)
  - Injection site pruritus [Unknown]
  - Injection site reaction [Unknown]
  - Product administered at inappropriate site [Unknown]
  - Hospitalisation [Recovered/Resolved]
  - Injection site bruising [Unknown]

NARRATIVE: CASE EVENT DATE: 20180724
